FAERS Safety Report 9471709 (Version 1)
Quarter: 2013Q3

REPORT INFORMATION
  Report Type: Spontaneous
  Country: GB (occurrence: None)
  Receive Date: 20130819
  Receipt Date: 20130819
  Transmission Date: 20140515
  Serious: Yes (Disabling)
  Sender: FDA-Public Use
  Company Number: GER/UKI/13/0033985

PATIENT
  Age: 30 Year
  Sex: Female
  Weight: 81 kg

DRUGS (9)
  1. QUETIAPINE [Suspect]
     Indication: PRODUCT USED FOR UNKNOWN INDICATION
     Route: 048
     Dates: start: 20110101
  2. ARIPIPRAZOLE [Suspect]
     Indication: PRODUCT USED FOR UNKNOWN INDICATION
     Route: 048
     Dates: start: 2007, end: 2008
  3. DEPIXOL [Suspect]
     Indication: PRODUCT USED FOR UNKNOWN INDICATION
     Route: 051
     Dates: start: 2004, end: 2007
  4. CODEINE (CODEINE) [Concomitant]
  5. DIAZEPAM (DIAZEPAM) [Concomitant]
  6. LOPERAMIDE (LOPERAMIDE) [Concomitant]
  7. LORATIDINE [Concomitant]
  8. PENTASA (MESALAZINE) [Concomitant]
  9. ZOLPIDEM (ZOLPIDEM) [Concomitant]

REACTIONS (30)
  - Crying [None]
  - Depression [None]
  - Hyporeflexia [None]
  - Obesity [None]
  - Mental retardation [None]
  - Self esteem decreased [None]
  - Sense of oppression [None]
  - Visual impairment [None]
  - Profound mental retardation [None]
  - Disturbance in attention [None]
  - Anal abscess [None]
  - Tremor [None]
  - Coordination abnormal [None]
  - Visual acuity reduced [None]
  - Paralysis [None]
  - Cerebrovascular accident [None]
  - Aphasia [None]
  - Activities of daily living impaired [None]
  - Flashback [None]
  - Anger [None]
  - Bradyphrenia [None]
  - Brain injury [None]
  - Insomnia [None]
  - Speech disorder [None]
  - Memory impairment [None]
  - Pain [None]
  - Screaming [None]
  - Logorrhoea [None]
  - Injury [None]
  - Mental impairment [None]
